FAERS Safety Report 8734722 (Version 2)
Quarter: 2012Q4

REPORT INFORMATION
  Report Type: 
  Country: US (occurrence: US)
  Receive Date: 20120821
  Receipt Date: 20120828
  Transmission Date: 20130627
  Serious: Yes (Hospitalization, Other)
  Sender: FDA-Public Use
  Company Number: PHEH2012US016251

PATIENT
  Age: 23 Year
  Sex: Female

DRUGS (6)
  1. CLOZARIL [Suspect]
     Indication: PSYCHOTIC DISORDER
     Dosage: 100 mg every noon, 17 hs
     Route: 048
     Dates: start: 20120815
  2. SIMVASTATIN [Concomitant]
     Indication: LIPIDS INCREASED
     Dosage: 10 mg, QHS
     Route: 048
     Dates: start: 20120815, end: 20120819
  3. TOPAMAX [Concomitant]
     Dosage: 125 mg, BID
     Route: 048
     Dates: start: 20120815, end: 20120819
  4. ABILIFY [Concomitant]
     Indication: DEPRESSION
     Dosage: 20 mg, every morning
     Route: 048
     Dates: start: 20120815, end: 20120819
  5. LEVOTHYROXINE [Concomitant]
     Indication: THYROID DISORDER
     Dosage: UNK UKN, UNK
     Route: 048
     Dates: start: 20120815, end: 20120819
  6. DEPAKOTE [Concomitant]
     Indication: AFFECTIVE DISORDER
     Dosage: 500 mg every noon, 17hs
     Route: 048
     Dates: start: 20120815, end: 20120819

REACTIONS (1)
  - Suicidal ideation [Recovering/Resolving]
